FAERS Safety Report 7305844-4 (Version None)
Quarter: 2011Q1

REPORT INFORMATION
  Report Type: 
  Country: None (occurrence: None)
  Receive Date: 20110222
  Receipt Date: 20110214
  Transmission Date: 20110831
  Serious: Yes (Hospitalization)
  Sender: FDA-Public Use
  Company Number: DE-ROCHE-760450

PATIENT
  Sex: Female
  Weight: 64 kg

DRUGS (1)
  1. BEVACIZUMAB [Suspect]
     Dosage: FREQUENCY: NOT REPORTED.
     Route: 042
     Dates: start: 20101124

REACTIONS (3)
  - VISUAL IMPAIRMENT [None]
  - SPEECH DISORDER [None]
  - HEADACHE [None]
